FAERS Safety Report 10337679 (Version 1)
Quarter: 2014Q3

REPORT INFORMATION
  Report Type: Spontaneous
  Country: US (occurrence: US)
  Receive Date: 20140724
  Receipt Date: 20140724
  Transmission Date: 20150326
  Serious: No
  Sender: FDA-Public Use
  Company Number: US-BIOGENIDEC-2014BI071325

PATIENT
  Sex: Female

DRUGS (6)
  1. TYSABRI [Concomitant]
     Active Substance: NATALIZUMAB
  2. REBIF [Concomitant]
     Active Substance: INTERFERON BETA-1A
  3. BETASERON [Concomitant]
     Active Substance: INTERFERON BETA-1B
  4. AVONEX [Suspect]
     Active Substance: INTERFERON BETA-1A
     Indication: PRODUCT USED FOR UNKNOWN INDICATION
     Route: 030
  5. TECFIDERA [Concomitant]
     Active Substance: DIMETHYL FUMARATE
  6. COPAXONE [Concomitant]
     Active Substance: GLATIRAMER ACETATE

REACTIONS (2)
  - Adverse reaction [Unknown]
  - Blindness unilateral [Unknown]
